FAERS Safety Report 4521140-2 (Version None)
Quarter: 2004Q4

REPORT INFORMATION
  Report Type: 
  Country: None (occurrence: None)
  Receive Date: 20041208
  Receipt Date: 20041020
  Transmission Date: 20050328
  Serious: Yes (Disabling)
  Sender: FDA-Public Use
  Company Number: DE-MERCK-0410DEU00728

PATIENT
  Age: 75 Year
  Sex: Female
  Weight: 50 kg

DRUGS (7)
  1. FOSAMAX [Suspect]
     Indication: OSTEOPOROSIS
     Route: 048
     Dates: start: 20010101
  2. VITAMIN D (UNSPECIFIED) [Concomitant]
     Route: 065
  3. CALCIUM (UNSPECIFIED) [Concomitant]
     Route: 065
  4. DIHYDRALAZINE SULFATE [Concomitant]
     Indication: CARDIAC FAILURE CONGESTIVE
     Route: 065
     Dates: start: 20010101
  5. LEVOTHYROXINE SODIUM [Concomitant]
     Indication: HYPOTHYROIDISM
     Route: 065
  6. METILDIGOXIN [Concomitant]
     Route: 065
  7. CAPTOPRIL [Concomitant]
     Route: 065

REACTIONS (1)
  - ASEPTIC NECROSIS BONE [None]
